FAERS Safety Report 4815770-8 (Version None)
Quarter: 2005Q4

REPORT INFORMATION
  Report Type: 
  Country: None (occurrence: None)
  Receive Date: 20051031
  Receipt Date: 20051026
  Transmission Date: 20060501
  Serious: Yes (Disabling)
  Sender: FDA-Public Use
  Company Number: US-GLAXOSMITHKLINE-A0579786A

PATIENT
  Age: 47 Year
  Sex: Male

DRUGS (5)
  1. MALARONE [Suspect]
     Indication: DRUG USE FOR UNKNOWN INDICATION
     Dosage: 250MG PER DAY
     Route: 048
     Dates: start: 20051014, end: 20051024
  2. ALLOPURINOL [Concomitant]
  3. ZOCOR [Concomitant]
  4. DOVONEX [Concomitant]
  5. LEVOXYL [Concomitant]

REACTIONS (3)
  - FATIGUE [None]
  - HEADACHE [None]
  - NAUSEA [None]
